FAERS Safety Report 4545729-X (Version None)
Quarter: 2005Q1

REPORT INFORMATION
  Report Type: 
  Country: None (occurrence: None)
  Receive Date: 20050103
  Receipt Date: 20041209
  Transmission Date: 20050727
  Serious: Yes (Hospitalization)
  Sender: FDA-Public Use
  Company Number: USA040978540

PATIENT
  Age: 70 Year
  Sex: Female
  Weight: 66 kg

DRUGS (3)
  1. HUMALOG [Suspect]
     Indication: DIABETES MELLITUS
     Dates: start: 19880101
  2. HUMULIN L [Suspect]
     Indication: DIABETES MELLITUS
     Dosage: 21 U DAY
     Dates: start: 19880101
  3. HUMULIN R [Suspect]
     Indication: DIABETES MELLITUS
     Dosage: 5 U IN THE MORNING
     Dates: start: 19880101

REACTIONS (13)
  - ARTHRALGIA [None]
  - BLOOD GLUCOSE FLUCTUATION [None]
  - BLOOD GLUCOSE INCREASED [None]
  - FEELING ABNORMAL [None]
  - INJECTION SITE HAEMORRHAGE [None]
  - INJECTION SITE INDURATION [None]
  - INJECTION SITE PAIN [None]
  - JOINT EFFUSION [None]
  - JOINT SWELLING [None]
  - KNEE ARTHROPLASTY [None]
  - POST PROCEDURAL COMPLICATION [None]
  - STRESS [None]
  - VISION BLURRED [None]
